FAERS Safety Report 7474912-9 (Version None)
Quarter: 2011Q2

REPORT INFORMATION
  Report Type: 
  Country: None (occurrence: None)
  Receive Date: 20110512
  Receipt Date: 20091105
  Transmission Date: 20111010
  Serious: Yes (Death, Hospitalization, Other)
  Sender: FDA-Public Use
  Company Number: US-BAYER-2011-010699

PATIENT
  Age: 75 Year
  Sex: Female
  Weight: 78.005 kg

DRUGS (25)
  1. TRASYLOL [Suspect]
     Indication: CORONARY ARTERY BYPASS
     Dosage: 2 KIU, PUMP PRIME
     Route: 042
     Dates: start: 20051010
  2. PREVACID [Concomitant]
     Dosage: UNK UNK, QD
     Route: 048
  3. BISOPROLOL FUMARATE [Concomitant]
     Dosage: 5/6.25 MG, QD
     Route: 048
  4. PRILOSEC [Concomitant]
     Dosage: UNK UNK, QD
     Route: 048
  5. SODIUM BICARBONATE [Concomitant]
  6. MANNITOL [Concomitant]
  7. MAGNESIUM SULFATE [Concomitant]
  8. TRASYLOL [Suspect]
     Dosage: 50 ML, Q1HR
     Route: 042
     Dates: start: 20051010
  9. CLONIDINE [Concomitant]
     Dosage: 0.2 MG, QD
     Route: 048
  10. METFORMIN HCL [Concomitant]
     Dosage: 100 MG, BID
     Route: 048
  11. LIPITOR [Concomitant]
     Dosage: 10 MG, QD
     Route: 048
  12. LORAZEPAM [Concomitant]
     Dosage: 1 G, UNK
     Route: 048
  13. LIDOCAINE [Concomitant]
  14. NITROGLYCERIN [Concomitant]
     Dosage: UNK
     Dates: start: 20051010
  15. TRASYLOL [Suspect]
     Dosage: UNK, LOADING DOSE
     Route: 042
     Dates: start: 20051010
  16. VASOTEC [Concomitant]
     Dosage: 20 MG, BID
     Route: 048
  17. ACETYLSALICYLIC ACID SRT [Concomitant]
     Dosage: 325 UNK, UNK
     Route: 048
  18. HEPARIN [Concomitant]
     Dosage: UNK
     Dates: start: 20051010
  19. DOBUTAMINE HYDROCHLORIDE [Concomitant]
     Dosage: UNK
     Dates: start: 20051010
  20. RED BLOOD CELLS [Concomitant]
     Dosage: 4 U, UNK
     Route: 042
     Dates: start: 20051010
  21. EPINEPHRINE [Concomitant]
  22. NITROGLYCERIN [Concomitant]
     Dosage: 2 MG, Q1HR, PRN
     Route: 062
  23. HUMULIN 70/30 [Concomitant]
     Dosage: 15 U, BID
     Route: 058
  24. LOPRESSOR [Concomitant]
     Dosage: 12.5 MG, BID
     Route: 048
  25. PRIMACOR [Concomitant]

REACTIONS (15)
  - ANXIETY [None]
  - FEAR [None]
  - CARDIAC ARREST [None]
  - EMOTIONAL DISTRESS [None]
  - UNEVALUABLE EVENT [None]
  - PAIN [None]
  - DEATH [None]
  - CARDIOGENIC SHOCK [None]
  - RENAL FAILURE [None]
  - RENAL DISORDER [None]
  - INJURY [None]
  - RENAL INJURY [None]
  - MULTI-ORGAN FAILURE [None]
  - RENAL IMPAIRMENT [None]
  - STRESS [None]
